FAERS Safety Report 5864200-6 (Version None)
Quarter: 2008Q3

REPORT INFORMATION
  Report Type: 
  Country: None (occurrence: None)
  Receive Date: 20080829
  Receipt Date: 20080821
  Transmission Date: 20090109
  Serious: Yes (Death)
  Sender: FDA-Public Use
  Company Number: FR-ROCHE-582243

PATIENT
  Sex: Female
  Weight: 70 kg

DRUGS (8)
  1. ROCEPHIN [Suspect]
     Indication: DRUG USE FOR UNKNOWN INDICATION
     Route: 042
     Dates: start: 20080307
  2. LASILIX FAIBLE [Suspect]
     Indication: DRUG USE FOR UNKNOWN INDICATION
     Dosage: STAR DATE BEFORE 2006
     Route: 065
  3. LOVENOX [Suspect]
     Indication: DRUG USE FOR UNKNOWN INDICATION
     Route: 065
     Dates: start: 20080305
  4. TAVANIC [Suspect]
     Indication: DRUG USE FOR UNKNOWN INDICATION
     Route: 065
     Dates: start: 20080307
  5. ATARAX [Concomitant]
     Dosage: START DATE REPORTED AS BEFORE SEPTEMBER 2006
  6. RIVOTRIL [Concomitant]
     Dosage: START DATE REPORTED AS BEFORE SEPTEMBER 2006
  7. TOPALGIC [Concomitant]
     Dates: start: 20080306, end: 20080307
  8. MONOCRIXO [Concomitant]
     Dosage: MONOCRIXO LP 100
     Dates: start: 20080306

REACTIONS (1)
  - CARDIAC ARREST [None]
